FAERS Safety Report 13941753 (Version 1)
Quarter: 2017Q3

REPORT INFORMATION
  Report Type: Spontaneous
  Country: US (occurrence: US)
  Receive Date: 20170906
  Receipt Date: 20170906
  Transmission Date: 20171127
  Serious: Yes (Disabling)
  Sender: FDA-Public Use
  Company Number: None

PATIENT
  Age: 55 Year
  Sex: Male
  Weight: 76.5 kg

DRUGS (2)
  1. MIRTAZIPINE [Suspect]
     Active Substance: MIRTAZAPINE
     Indication: INSOMNIA
     Dosage: ?          QUANTITY:30 TABLET(S);?
     Route: 060
     Dates: start: 20170809, end: 20170820
  2. MIRTAZIPINE [Suspect]
     Active Substance: MIRTAZAPINE
     Indication: DEPRESSION
     Dosage: ?          QUANTITY:30 TABLET(S);?
     Route: 060
     Dates: start: 20170809, end: 20170820

REACTIONS (2)
  - Nightmare [None]
  - Drug ineffective [None]

NARRATIVE: CASE EVENT DATE: 20170809
